FAERS Safety Report 7780475-0 (Version None)
Quarter: 2011Q3

REPORT INFORMATION
  Report Type: 
  Country: None (occurrence: None)
  Receive Date: 20110927
  Receipt Date: 20110606
  Transmission Date: 20111222
  Serious: No
  Sender: FDA-Public Use
  Company Number: US-GLAXOSMITHKLINE-A0930384A

PATIENT
  Age: 57 Year
  Sex: Female

DRUGS (4)
  1. SIMVASTATIN [Concomitant]
  2. LAMICTAL [Suspect]
     Indication: BRUXISM
     Dosage: 100MG PER DAY
     Route: 048
     Dates: start: 20110409
  3. WELLBUTRIN [Concomitant]
  4. LISINOPRIL [Concomitant]

REACTIONS (5)
  - ARTHRALGIA [None]
  - MYALGIA [None]
  - AFFECT LABILITY [None]
  - MUSCULOSKELETAL STIFFNESS [None]
  - CRYING [None]
